FAERS Safety Report 6582888-1 (Version None)
Quarter: 2010Q1

REPORT INFORMATION
  Report Type: 
  Country: None (occurrence: None)
  Receive Date: 20100216
  Receipt Date: 20100205
  Transmission Date: 20100710
  Serious: Yes (Hospitalization, Other)
  Sender: FDA-Public Use
  Company Number: US-ELI_LILLY_AND_COMPANY-US201001001960

PATIENT
  Sex: Female

DRUGS (6)
  1. HUMULIN R [Suspect]
     Indication: TYPE 2 DIABETES MELLITUS
     Dosage: UNK, AS NEEDED
     Dates: start: 19960101
  2. HUMULIN R [Suspect]
     Dosage: 4 U, UNK
     Dates: start: 20100109
  3. HUMULIN R [Suspect]
     Dosage: UNK, AS NEEDED
  4. HUMULIN R [Suspect]
     Dosage: UNK, AS NEEDED
  5. ZOSTAVAX [Concomitant]
     Indication: FACIAL PALSY
  6. LANTUS [Concomitant]

REACTIONS (18)
  - AGITATION [None]
  - ANGER [None]
  - ANGIOPLASTY [None]
  - BLOOD GLUCOSE INCREASED [None]
  - CATARACT [None]
  - CORONARY ARTERY DISEASE [None]
  - DRUG INEFFECTIVE [None]
  - FATIGUE [None]
  - GAIT DISTURBANCE [None]
  - GENERAL PHYSICAL HEALTH DETERIORATION [None]
  - INSOMNIA [None]
  - INTENTIONAL DRUG MISUSE [None]
  - JOINT RANGE OF MOTION DECREASED [None]
  - LOWER LIMB FRACTURE [None]
  - MALAISE [None]
  - STENT PLACEMENT [None]
  - STRESS [None]
  - UPPER LIMB FRACTURE [None]
